FAERS Safety Report 7130658-8 (Version None)
Quarter: 2010Q4

REPORT INFORMATION
  Report Type: 
  Country: None (occurrence: None)
  Receive Date: 20101201
  Receipt Date: 20101119
  Transmission Date: 20110411
  Serious: Yes (Other)
  Sender: FDA-Public Use
  Company Number: US-PFIZER INC-2010136710

PATIENT
  Sex: Female

DRUGS (2)
  1. REVATIO [Suspect]
     Indication: PULMONARY ARTERIAL HYPERTENSION
     Dosage: 20 MG, 3X/DAY
  2. TRACLEER [Suspect]
     Indication: SCLERODERMA
     Dosage: 125 MG, 2X/DAY
     Route: 048

REACTIONS (1)
  - LIVER FUNCTION TEST ABNORMAL [None]
